FAERS Safety Report 20165338 (Version 3)
Quarter: 2021Q4

REPORT INFORMATION
  Report Type: Spontaneous
  Country: BR (occurrence: BR)
  Receive Date: 20211209
  Receipt Date: 20211227
  Transmission Date: 20220303
  Serious: Yes (Death, Life-Threatening, Other)
  Sender: FDA-Public Use
  Company Number: BR-RECORDATI RARE DISEASE INC.-2021005062

PATIENT
  Age: 21 Year
  Sex: Female

DRUGS (4)
  1. PANHEMATIN [Suspect]
     Active Substance: HEMIN
     Indication: Porphyria acute
     Dosage: ONE VIAL A DAY
     Route: 042
     Dates: start: 20211124, end: 20211126
  2. PANHEMATIN [Suspect]
     Active Substance: HEMIN
     Dosage: HALF VIAL A DAY
     Route: 042
     Dates: start: 20211123, end: 20211123
  3. HEMIN [Suspect]
     Active Substance: HEMIN
     Indication: Porphyria acute
     Dosage: UNK, 13 DOSES
     Route: 065
     Dates: end: 20211111
  4. HEMIN [Suspect]
     Active Substance: HEMIN
     Indication: Porphyria acute
     Dosage: 4 WHOLE AMPOULES
     Route: 042

REACTIONS (4)
  - Myocardial infarction [Recovered/Resolved with Sequelae]
  - Seizure [Unknown]
  - Aspiration [Unknown]
  - Death [Fatal]

NARRATIVE: CASE EVENT DATE: 20211128
